FAERS Safety Report 26011641 (Version 1)
Quarter: 2025Q4

REPORT INFORMATION
  Report Type: Spontaneous
  Country: US (occurrence: US)
  Receive Date: 20251107
  Receipt Date: 20251107
  Transmission Date: 20260117
  Serious: Yes (Other)
  Sender: SANOFI AVENTIS
  Company Number: US-SA-2025SA322675

PATIENT
  Sex: Male
  Weight: 75 kg

DRUGS (13)
  1. LUMIZYME [Suspect]
     Active Substance: ALGLUCOSIDASE ALFA
     Indication: Glycogen storage disease type II
     Dosage: 1600 MG, QOW
     Route: 042
     Dates: start: 2021
  2. STERILE WATER FOR INJECTION [Concomitant]
     Active Substance: WATER
  3. EPINEPHRINE [Concomitant]
     Active Substance: EPINEPHRINE
  4. SODIUM CHLORIDE [Concomitant]
     Active Substance: SODIUM CHLORIDE
  5. ACETAMINOPHEN [Concomitant]
     Active Substance: ACETAMINOPHEN
  6. SODIUM CHLORIDE [Concomitant]
     Active Substance: SODIUM CHLORIDE
  7. VITAMIN D NOS [Concomitant]
     Active Substance: CHOLECALCIFEROL\ERGOCALCIFEROL
  8. TADALAFIL [Concomitant]
     Active Substance: TADALAFIL
  9. LIDOCAINE [Concomitant]
     Active Substance: LIDOCAINE
  10. LISINOPRIL [Concomitant]
     Active Substance: LISINOPRIL
  11. IRON [Concomitant]
     Active Substance: IRON
  12. ASPIRIN [Concomitant]
     Active Substance: ASPIRIN
  13. DIPHENHYDRAMINE HYDROCHLORIDE [Concomitant]
     Active Substance: DIPHENHYDRAMINE HYDROCHLORIDE

REACTIONS (2)
  - Cardiac failure [Unknown]
  - Contusion [Not Recovered/Not Resolved]
